FAERS Safety Report 4551034-8 (Version None)
Quarter: 2005Q1

REPORT INFORMATION
  Report Type: 
  Country: None (occurrence: None)
  Receive Date: 20050113
  Receipt Date: 20040512
  Transmission Date: 20050727
  Serious: No
  Sender: FDA-Public Use
  Company Number: US-BRISTOL-MYERS SQUIBB COMPANY-12586301

PATIENT

DRUGS (1)
  1. TRAZODONE HCL [Suspect]
     Dosage: ^FOR A LONG PERIOD OF TIME^
     Route: 048

REACTIONS (1)
  - ALOPECIA [None]
